FAERS Safety Report 16901391 (Version 2)
Quarter: 2020Q1

REPORT INFORMATION
  Report Type: Report from Study
  Country: None (occurrence: US)
  Receive Date: 20191009
  Receipt Date: 20200107
  Transmission Date: 20200409
  Serious: Yes (Hospitalization, Other)
  Sender: FDA-Public Use
  Company Number: US-ABBVIE-19K-163-2950411-00

PATIENT
  Sex: Female

DRUGS (1)
  1. HUMIRA [Suspect]
     Active Substance: ADALIMUMAB
     Indication: CROHN^S DISEASE
     Route: 058

REACTIONS (5)
  - Abdominal distension [Recovered/Resolved]
  - Obstruction [Recovered/Resolved]
  - Pain [Recovered/Resolved]
  - Fall [Unknown]
  - Oesophagectomy [Recovered/Resolved]

NARRATIVE: CASE EVENT DATE: 2018
